FAERS Safety Report 24052129 (Version 3)
Quarter: 2024Q3

REPORT INFORMATION
  Report Type: Report from Study
  Country: CA (occurrence: CA)
  Receive Date: 20240704
  Receipt Date: 20240716
  Transmission Date: 20241016
  Serious: Yes (Other)
  Sender: CSL BEHRING
  Company Number: CA-BEH-2023165751

PATIENT
  Age: 79 Year
  Sex: Female
  Weight: 68 kg

DRUGS (7)
  1. HIZENTRA [Suspect]
     Active Substance: HUMAN IMMUNOGLOBULIN G
     Indication: Primary immunodeficiency syndrome
     Dosage: 30 GRAM, QW
     Route: 065
     Dates: start: 20230829
  2. HIZENTRA [Suspect]
     Active Substance: HUMAN IMMUNOGLOBULIN G
     Dosage: UNK
     Route: 065
     Dates: start: 202311
  3. HIZENTRA [Suspect]
     Active Substance: HUMAN IMMUNOGLOBULIN G
     Dosage: UNK
     Route: 065
     Dates: start: 20240215
  4. HIZENTRA [Suspect]
     Active Substance: HUMAN IMMUNOGLOBULIN G
     Dosage: 30 GRAM, QW
     Route: 058
     Dates: start: 20230829
  5. HIZENTRA [Suspect]
     Active Substance: HUMAN IMMUNOGLOBULIN G
     Dosage: UNK
     Route: 065
     Dates: start: 20240315
  6. HIZENTRA [Suspect]
     Active Substance: HUMAN IMMUNOGLOBULIN G
     Dosage: 10 G, QW
     Route: 065
  7. HIZENTRA [Suspect]
     Active Substance: HUMAN IMMUNOGLOBULIN G
     Dosage: 10 G, QW
     Route: 058
     Dates: start: 20230829

REACTIONS (22)
  - Neuropathy peripheral [Recovering/Resolving]
  - Hand fracture [Recovering/Resolving]
  - Radial nerve compression [Unknown]
  - Neuropathy peripheral [Unknown]
  - Neuropathy peripheral [Unknown]
  - Microsurgery to hand [Unknown]
  - Peripheral swelling [Unknown]
  - Peripheral swelling [Unknown]
  - Limb discomfort [Unknown]
  - Peripheral vascular disorder [Unknown]
  - Therapy interrupted [Unknown]
  - Product use issue [Unknown]
  - Post procedural discomfort [Unknown]
  - Procedural pain [Unknown]
  - Hypokinesia [Recovering/Resolving]
  - Fine motor skill dysfunction [Recovering/Resolving]
  - Fall [Recovering/Resolving]
  - Product use issue [Unknown]
  - Treatment delayed [Unknown]
  - Fine motor skill dysfunction [Unknown]
  - Treatment delayed [Unknown]
  - Therapy interrupted [Unknown]

NARRATIVE: CASE EVENT DATE: 20231116
